FAERS Safety Report 8150507-9 (Version None)
Quarter: 2012Q1

REPORT INFORMATION
  Report Type: 
  Country: None (occurrence: None)
  Receive Date: 20120220
  Receipt Date: 20120206
  Transmission Date: 20120608
  Serious: Yes (Other)
  Sender: FDA-Public Use
  Company Number: US-UCBSA-051126

PATIENT
  Sex: Female

DRUGS (1)
  1. VIMPAT [Suspect]
     Dosage: UNKNOWN DOSE,IV INFUSION WAS GIVEN AS LOADING DOSE, LATER PLACED ON NORMAL RATE
     Route: 042

REACTIONS (1)
  - ARRHYTHMIA [None]
